FAERS Safety Report 4301310-9 (Version None)
Quarter: 2004Q1

REPORT INFORMATION
  Report Type: 
  Country: None (occurrence: None)
  Receive Date: 20040219
  Receipt Date: 20040204
  Transmission Date: 20041129
  Serious: Yes (Hospitalization)
  Sender: FDA-Public Use
  Company Number: 2004-BP-00742NB

PATIENT
  Age: 52 Year
  Sex: Female

DRUGS (4)
  1. MOBIC [Suspect]
     Indication: RHEUMATOID ARTHRITIS
     Dosage: 10 MG, PO
     Route: 048
     Dates: start: 20031201, end: 20040119
  2. STOGAR (TA) [Concomitant]
  3. MUCOSTA (REBAMIPIDE) (TA) [Concomitant]
  4. ONON (PRANLUKAST) (KA) [Concomitant]

REACTIONS (1)
  - ALVEOLITIS ALLERGIC [None]
